FAERS Safety Report 4885791-8 (Version None)
Quarter: 2006Q1

REPORT INFORMATION
  Report Type: 
  Country: None (occurrence: None)
  Receive Date: 20060117
  Receipt Date: 20060103
  Transmission Date: 20060701
  Serious: Yes (Other)
  Sender: FDA-Public Use
  Company Number: 2006-BP-00036RO

PATIENT
  Age: 31 Year
  Sex: Female

DRUGS (2)
  1. METHADONE HCL [Suspect]
     Indication: DRUG DEPENDENCE
     Dosage: 40 MG/DAY, PO
     Route: 048
  2. FLUVOXAMINE MALEATE [Suspect]
     Indication: DRUG DEPENDENCE
     Dosage: 50 MG/DAY, PO
     Route: 048

REACTIONS (2)
  - DRUG EXPOSURE DURING PREGNANCY [None]
  - INADEQUATE ANALGESIA [None]
